FAERS Safety Report 25755886 (Version 1)
Quarter: 2025Q3

REPORT INFORMATION
  Report Type: Spontaneous
  Country: US (occurrence: None)
  Receive Date: 20250903
  Receipt Date: 20250903
  Transmission Date: 20251020
  Serious: No
  Sender: ALKERMES
  Company Number: US-ALKERMES INC.-ALK-2025-002308

PATIENT

DRUGS (1)
  1. LYBALVI [Suspect]
     Active Substance: OLANZAPINE\SAMIDORPHAN L-MALATE
     Indication: Bipolar I disorder

REACTIONS (4)
  - Wrong technique in product usage process [Unknown]
  - Hypersomnia [Unknown]
  - Feeling drunk [Unknown]
  - Brain fog [Unknown]
